FAERS Safety Report 22078294 (Version 1)
Quarter: 2023Q1

REPORT INFORMATION
  Report Type: Spontaneous
  Country: US (occurrence: None)
  Receive Date: 20230308
  Receipt Date: 20230308
  Transmission Date: 20230418
  Serious: Yes (Disabling)
  Sender: FDA-Public Use
  Company Number: None

PATIENT
  Sex: Female

DRUGS (2)
  1. FENTANYL [Suspect]
     Active Substance: FENTANYL
  2. OXYCODONE [Suspect]
     Active Substance: OXYCODONE

REACTIONS (7)
  - General physical health deterioration [None]
  - Wheelchair user [None]
  - Pain [None]
  - Musculoskeletal disorder [None]
  - Musculoskeletal disorder [None]
  - Quality of life decreased [None]
  - Legal problem [None]
